FAERS Safety Report 6833801-0 (Version None)
Quarter: 2010Q3

REPORT INFORMATION
  Report Type: 
  Country: None (occurrence: None)
  Receive Date: 20100712
  Receipt Date: 20070402
  Transmission Date: 20110219
  Serious: No
  Sender: FDA-Public Use
  Company Number: US-PFIZER INC-2007027521

PATIENT
  Sex: Female
  Weight: 74.84 kg

DRUGS (5)
  1. CHANTIX [Suspect]
     Indication: SMOKING CESSATION THERAPY
     Dates: start: 20070101
  2. LITHIUM [Concomitant]
     Indication: BIPOLAR DISORDER
     Route: 048
  3. NORVASC [Concomitant]
     Route: 048
  4. CRESTOR [Concomitant]
     Route: 048
  5. DRUG, UNSPECIFIED [Concomitant]
     Route: 048

REACTIONS (1)
  - DRUG INEFFECTIVE [None]
